FAERS Safety Report 16843650 (Version 1)
Quarter: 2019Q3

REPORT INFORMATION
  Report Type: Spontaneous
  Country: IN (occurrence: IN)
  Receive Date: 20190924
  Receipt Date: 20190924
  Transmission Date: 20191005
  Serious: Yes (Hospitalization, Other)
  Sender: FDA-Public Use
  Company Number: IN-SCIEGEN PHARMACEUTICALS INC-2019SCILIT00261

PATIENT

DRUGS (5)
  1. ACETYLSALICYLIC ACID [Suspect]
     Active Substance: ASPIRIN
  2. AMIODARONE [Interacting]
     Active Substance: AMIODARONE
  3. WARFARIN [Interacting]
     Active Substance: WARFARIN
  4. VITAMIN K [Interacting]
     Active Substance: PHYTONADIONE
  5. CLOPIDOGREL [Suspect]
     Active Substance: CLOPIDOGREL BISULFATE

REACTIONS (2)
  - Anaemia [Recovering/Resolving]
  - Vascular pseudoaneurysm thrombosis [Recovering/Resolving]
